FAERS Safety Report 11734535 (Version 1)
Quarter: 2015Q4

REPORT INFORMATION
  Report Type: Spontaneous
  Country: US (occurrence: None)
  Receive Date: 20151112
  Receipt Date: 20151112
  Transmission Date: 20160304
  Serious: No
  Sender: FDA-Public Use
  Company Number: None

PATIENT
  Age: 58 Year
  Sex: Female

DRUGS (4)
  1. FASLODEX [Concomitant]
     Active Substance: FULVESTRANT
  2. ONDANSETRON [Concomitant]
     Active Substance: ONDANSETRON
  3. IBRANCE [Suspect]
     Active Substance: PALBOCICLIB
     Indication: NEOPLASM MALIGNANT
     Route: 048
     Dates: start: 20151015
  4. SOD CHLORIDE [Concomitant]

REACTIONS (2)
  - Anaemia [None]
  - White blood cell count decreased [None]

NARRATIVE: CASE EVENT DATE: 20151102
